FAERS Safety Report 8978722 (Version 3)
Quarter: 2013Q1

REPORT INFORMATION
  Report Type: Spontaneous
  Country: US (occurrence: US)
  Receive Date: 20121221
  Receipt Date: 20130227
  Transmission Date: 20140127
  Serious: Yes (Hospitalization, Other)
  Sender: FDA-Public Use
  Company Number: US-VERTEX PHARMACEUTICALS INC.-2012-026396

PATIENT
  Age: 54 Year
  Sex: Male
  Weight: 63 kg

DRUGS (11)
  1. INCIVEK [Suspect]
     Indication: HEPATITIS C
     Dosage: 750 MG, TID
     Route: 048
     Dates: start: 20121213, end: 20121218
  2. INCIVEK [Suspect]
     Dosage: 750 MG, TID
     Route: 048
     Dates: end: 20130220
  3. PEGASYS [Suspect]
     Indication: HEPATITIS C
     Dosage: 180 ?G, QW
     Route: 058
     Dates: start: 20121213, end: 20121218
  4. PEGASYS [Suspect]
     Dosage: 180 ?G, QW
     Route: 058
     Dates: end: 20130216
  5. RIBAVIRIN [Suspect]
     Indication: HEPATITIS C
     Dosage: 400 MG, BID
     Route: 048
     Dates: start: 20121213, end: 20121218
  6. RIBAVIRIN [Suspect]
     Dosage: 400 MG, BID
     Route: 048
     Dates: end: 20130220
  7. MELOXICAM ACTAVIS [Concomitant]
     Indication: FIBROMYALGIA
     Dosage: UNK
     Route: 048
  8. MELOXICAM ACTAVIS [Concomitant]
     Indication: RHEUMATOID ARTHRITIS
  9. AMITRIPTYLINE [Concomitant]
     Indication: DEPRESSION
     Dosage: UNK
     Route: 048
  10. OXYCODONE [Concomitant]
     Indication: PAIN
     Dosage: AS DIRECTED PRN
     Route: 048
  11. ZOFRAN [Concomitant]

REACTIONS (10)
  - Back injury [Recovered/Resolved]
  - Road traffic accident [Unknown]
  - Inappropriate schedule of drug administration [Recovered/Resolved]
  - Influenza [Recovered/Resolved]
  - Headache [Recovered/Resolved]
  - Weight decreased [Unknown]
  - Back pain [Recovered/Resolved]
  - Diarrhoea [Recovered/Resolved]
  - Vomiting [Recovered/Resolved]
  - Nausea [Recovered/Resolved]
